FAERS Safety Report 24028852 (Version 3)
Quarter: 2024Q3

REPORT INFORMATION
  Report Type: Spontaneous
  Country: US (occurrence: US)
  Receive Date: 20240628
  Receipt Date: 20240701
  Transmission Date: 20241016
  Serious: No
  Sender: JOHNSON AND JOHNSON
  Company Number: US-JNJFOC-20240664031

PATIENT

DRUGS (2)
  1. XARELTO [Suspect]
     Active Substance: RIVAROXABAN
     Indication: Pulmonary embolism
     Dosage: GTIN NUMBER 00350458580303, SERIAL NUMBER 100009051882
     Route: 048
     Dates: start: 202403
  2. XARELTO [Suspect]
     Active Substance: RIVAROXABAN
     Dosage: GTIN NUMBER 00350458580303, SERIAL NUMBER 100009051882
     Route: 048

REACTIONS (2)
  - Tinnitus [Not Recovered/Not Resolved]
  - Product label issue [Unknown]

NARRATIVE: CASE EVENT DATE: 20240624
